FAERS Safety Report 6609993-5 (Version None)
Quarter: 2010Q1

REPORT INFORMATION
  Report Type: 
  Country: None (occurrence: None)
  Receive Date: 20100302
  Receipt Date: 20100222
  Transmission Date: 20100710
  Serious: Yes (Other)
  Sender: FDA-Public Use
  Company Number: US-ROCHE-681285

PATIENT
  Sex: Male

DRUGS (6)
  1. PEG-INTERFERON A-2A (RO 25-8310) [Suspect]
     Indication: HEPATITIS C
     Dosage: FORM: PRE-FILLED SYRINGE
     Route: 065
     Dates: start: 20090901
  2. RIBAVIRIN [Suspect]
     Indication: HEPATITIS C
     Dosage: DIVIDED DOSES
     Route: 065
     Dates: start: 20090901
  3. METOPROLOL TARTRATE [Concomitant]
  4. OMEPRAZOLE [Concomitant]
  5. MORPHINE [Concomitant]
  6. RESTORIL [Concomitant]

REACTIONS (5)
  - DYSPNOEA EXERTIONAL [None]
  - GINGIVAL SWELLING [None]
  - INJECTION SITE DISCOLOURATION [None]
  - TEETH BRITTLE [None]
  - WEIGHT DECREASED [None]
